FAERS Safety Report 23774031 (Version 1)
Quarter: 2024Q2

REPORT INFORMATION
  Report Type: Report from Study
  Country: US (occurrence: US)
  Receive Date: 20240423
  Receipt Date: 20240423
  Transmission Date: 20240716
  Serious: Yes (Hospitalization, Other)
  Sender: FDA-Public Use
  Company Number: US-ABBVIE-5726432

PATIENT
  Age: 56 Year
  Sex: Male

DRUGS (1)
  1. SKYRIZI [Suspect]
     Active Substance: RISANKIZUMAB-RZAA
     Indication: Psoriasis
     Route: 058
     Dates: start: 20211010

REACTIONS (3)
  - Gastrointestinal disorder [Recovering/Resolving]
  - Bacteraemia [Recovering/Resolving]
  - Immunosuppression [Recovering/Resolving]

NARRATIVE: CASE EVENT DATE: 20240410
